FAERS Safety Report 8416935-9 (Version None)
Quarter: 2012Q2

REPORT INFORMATION
  Report Type: 
  Country: None (occurrence: None)
  Receive Date: 20120530
  Receipt Date: 20120518
  Transmission Date: 20120825
  Serious: Yes (Other)
  Sender: FDA-Public Use
  Company Number: 217588

PATIENT
  Sex: Female

DRUGS (2)
  1. INNOHEP [Suspect]
     Indication: PROPHYLAXIS
  2. INNOHEP [Suspect]
     Indication: COMPLICATION OF PREGNANCY

REACTIONS (2)
  - PLACENTAL DISORDER [None]
  - MATERNAL EXPOSURE DURING PREGNANCY [None]
